FAERS Safety Report 9890794 (Version 1)
Quarter: 2014Q1

REPORT INFORMATION
  Report Type: Spontaneous
  Country: AU (occurrence: None)
  Receive Date: 20140210
  Receipt Date: 20140210
  Transmission Date: 20141002
  Serious: Yes (Hospitalization)
  Sender: FDA-Public Use
  Company Number: 2014/003

PATIENT
  Sex: 0

DRUGS (2)
  1. GRANISETRON [Suspect]
     Indication: ANTIEMETIC SUPPORTIVE CARE
  2. 5-AZACYTIDINE [Suspect]
     Indication: MYELODYSPLASTIC SYNDROME
     Route: 058

REACTIONS (7)
  - Colitis ischaemic [None]
  - Colon gangrene [None]
  - Large intestine perforation [None]
  - Peritonitis [None]
  - Renal failure [None]
  - Post procedural sepsis [None]
  - Dialysis [None]
